FAERS Safety Report 8340966-0 (Version None)
Quarter: 2012Q2

REPORT INFORMATION
  Report Type: 
  Country: None (occurrence: None)
  Receive Date: 20120507
  Receipt Date: 20091127
  Transmission Date: 20120825
  Serious: Yes (Death)
  Sender: FDA-Public Use
  Company Number: MA-ROCHE-671666

PATIENT
  Age: 45 Year
  Sex: Female
  Weight: 50 kg

DRUGS (5)
  1. AVASTIN [Suspect]
     Indication: PRODUCT USED FOR UNKNOWN INDICATION
     Dosage: DOSE FORM NOT REPORTED.
     Route: 042
     Dates: start: 20090120, end: 20090629
  2. FLUOROURACIL [Suspect]
     Indication: PRODUCT USED FOR UNKNOWN INDICATION
     Dosage: DOSE: 750
     Route: 042
     Dates: start: 20090120, end: 20090629
  3. ZOFRAN [Concomitant]
     Route: 042
     Dates: start: 20090120, end: 20090629
  4. CISPLATIN [Suspect]
     Indication: PRODUCT USED FOR UNKNOWN INDICATION
     Dosage: DOSE: 40
     Route: 042
     Dates: start: 20090120, end: 20090629
  5. PACLITAXEL [Suspect]
     Indication: PRODUCT USED FOR UNKNOWN INDICATION
     Dosage: DOSE:80
     Route: 042
     Dates: start: 20090120, end: 20090629

REACTIONS (1)
  - BONE MARROW FAILURE [None]
